FAERS Safety Report 8611017-5 (Version None)
Quarter: 2012Q3

REPORT INFORMATION
  Report Type: 
  Country: None (occurrence: None)
  Receive Date: 20120822
  Receipt Date: 20120815
  Transmission Date: 20120928
  Serious: Yes (Other)
  Sender: FDA-Public Use
  Company Number: US-PFIZER INC-2012199957

PATIENT
  Age: 34 Year
  Sex: Male
  Weight: 83.9 kg

DRUGS (7)
  1. ALPRAZOLAM [Suspect]
     Dosage: 1 MG, AS NEEDED
  2. ALPRAZOLAM [Suspect]
     Indication: ANXIETY
     Dosage: UNK
  3. ALPRAZOLAM [Suspect]
     Dosage: 2MG DAILY
  4. ALPRAZOLAM [Suspect]
     Dosage: 0.5 MG, UNK
  5. SERTRALINE HYDROCHLORIDE [Suspect]
     Indication: ANXIETY
     Dosage: 50 MG, 1X/DAY
  6. ALPRAZOLAM [Suspect]
     Dosage: 0.5 MG EVERY FEW HOURS UP TO 3 MG DAILY
  7. ALPRAZOLAM [Suspect]
     Dosage: 0.5 MG, AS NEEDED

REACTIONS (5)
  - BLINDNESS [None]
  - PALPITATIONS [None]
  - ABASIA [None]
  - ANXIETY [None]
  - CARDIAC DISORDER [None]
